FAERS Safety Report 7288905 (Version 14)
Quarter: 2015Q4

REPORT INFORMATION
  Report Type: Report from Study
  Country: CA (occurrence: CA)
  Receive Date: 20100222
  Receipt Date: 20151218
  Transmission Date: 20160305
  Serious: Yes (Other)
  Sender: FDA-Public Use
  Company Number: PHHY2009CA31945

PATIENT
  Sex: Male

DRUGS (1)
  1. SANDOSTATIN LAR DEPOT [Suspect]
     Active Substance: OCTREOTIDE ACETATE
     Indication: CARCINOID TUMOUR
     Dosage: 30 MG, EVERY 4 WEEKS
     Route: 030
     Dates: start: 20090701

REACTIONS (14)
  - Flank pain [Unknown]
  - Abdominal pain lower [Unknown]
  - Cough [Unknown]
  - Malignant neoplasm progression [Unknown]
  - Defaecation urgency [Unknown]
  - Dizziness [Unknown]
  - Abdominal pain upper [Unknown]
  - Flushing [Unknown]
  - Medical device complication [Unknown]
  - Blood pressure systolic increased [Unknown]
  - Arthralgia [Unknown]
  - Abdominal distension [Unknown]
  - Nasopharyngitis [Unknown]
  - Abdominal discomfort [Unknown]
